FAERS Safety Report 11857167 (Version 1)
Quarter: 2015Q4

REPORT INFORMATION
  Report Type: Spontaneous
  Country: US (occurrence: US)
  Receive Date: 20151221
  Receipt Date: 20151221
  Transmission Date: 20160305
  Serious: No
  Sender: FDA-Public Use
  Company Number: US-PFIZER INC-2015423377

PATIENT
  Age: 61 Year
  Sex: Female
  Weight: 88 kg

DRUGS (1)
  1. LYRICA [Suspect]
     Active Substance: PREGABALIN
     Indication: FIBROMYALGIA
     Dosage: 150 MG, 3X/DAY
     Route: 048
     Dates: start: 2015

REACTIONS (15)
  - Asthma [Not Recovered/Not Resolved]
  - Nasopharyngitis [Unknown]
  - Arthropathy [Unknown]
  - Tongue biting [Not Recovered/Not Resolved]
  - Dry mouth [Unknown]
  - Balance disorder [Unknown]
  - Osteoarthritis [Unknown]
  - Chronic obstructive pulmonary disease [Not Recovered/Not Resolved]
  - Anxiety [Not Recovered/Not Resolved]
  - Condition aggravated [Not Recovered/Not Resolved]
  - Hypoaesthesia oral [Not Recovered/Not Resolved]
  - Hypoaesthesia [Unknown]
  - Rash [Unknown]
  - Musculoskeletal pain [Unknown]
  - Faecal incontinence [Unknown]

NARRATIVE: CASE EVENT DATE: 2015
